FAERS Safety Report 21284720 (Version 1)
Quarter: 2022Q3

REPORT INFORMATION
  Report Type: Spontaneous
  Country: US (occurrence: US)
  Receive Date: 20220902
  Receipt Date: 20220902
  Transmission Date: 20221027
  Serious: No
  Sender: FDA-Public Use
  Company Number: US-Accord-252822

PATIENT
  Age: 84 Year
  Sex: Female

DRUGS (1)
  1. DALFAMPRIDINE [Suspect]
     Active Substance: DALFAMPRIDINE
     Indication: Cerebellar ataxia
     Dosage: DOSE: 10 MILLIGRAM EVERY 12 HOURS
     Route: 065

REACTIONS (3)
  - Pruritus [Unknown]
  - Rash [Unknown]
  - Off label use [Unknown]
